FAERS Safety Report 4998211-X (Version None)
Quarter: 2006Q2

REPORT INFORMATION
  Report Type: 
  Country: None (occurrence: None)
  Receive Date: 20060510
  Receipt Date: 20060414
  Transmission Date: 20061013
  Serious: Yes (Hospitalization, Other)
  Sender: FDA-Public Use
  Company Number: PHEH2006US04978

PATIENT
  Age: 82 Year
  Sex: Male

DRUGS (6)
  1. ZOMETA [Suspect]
     Indication: PROSTATE CANCER METASTATIC
     Dosage: 4MG Q MONTH
     Dates: start: 20060412
  2. LUPRON [Concomitant]
     Dosage: 22.5MG UNK
  3. CASODEX [Concomitant]
     Dosage: 50MG QD
  4. COLACE [Concomitant]
     Dosage: 300MG QD
  5. LASIX [Concomitant]
     Dosage: 40MG QD
  6. LEXAPRO [Concomitant]

REACTIONS (2)
  - DELUSIONAL PERCEPTION [None]
  - PYREXIA [None]
